FAERS Safety Report 24257915 (Version 2)
Quarter: 2024Q4

REPORT INFORMATION
  Report Type: Report from Study
  Country: US (occurrence: US)
  Receive Date: 20240828
  Receipt Date: 20241105
  Transmission Date: 20250114
  Serious: Yes (Other)
  Sender: AZURITY PHARMACEUTICALS
  Company Number: US-APCER-AZR202408-000316

PATIENT
  Age: 8 Year
  Sex: Male

DRUGS (3)
  1. TRIPTODUR [Suspect]
     Active Substance: TRIPTORELIN
     Indication: Product used for unknown indication
     Dosage: FIRST DOSE
     Route: 030
     Dates: start: 20240703
  2. ZYRTEC [Concomitant]
     Active Substance: CETIRIZINE HYDROCHLORIDE
     Indication: Product used for unknown indication
     Dosage: UNK
     Route: 065
  3. ESCITALOPRAM [Concomitant]
     Active Substance: ESCITALOPRAM OXALATE
     Indication: Anxiety
     Dosage: UNK
     Route: 065

REACTIONS (8)
  - Urinary retention [Not Recovered/Not Resolved]
  - Spontaneous penile erection [Recovering/Resolving]
  - Spontaneous ejaculation [Unknown]
  - Pruritus [Unknown]
  - Dysuria [Unknown]
  - Abdominal pain upper [Not Recovered/Not Resolved]
  - Headache [Not Recovered/Not Resolved]
  - Acne [Unknown]

NARRATIVE: CASE EVENT DATE: 20240919
